FAERS Safety Report 6475909-8 (Version None)
Quarter: 2009Q4

REPORT INFORMATION
  Report Type: 
  Country: None (occurrence: None)
  Receive Date: 20091204
  Receipt Date: 20091123
  Transmission Date: 20100525
  Serious: Yes (Other)
  Sender: FDA-Public Use
  Company Number: US-GENENTECH-295195

PATIENT

DRUGS (2)
  1. ACTIVASE [Suspect]
     Indication: DEEP VEIN THROMBOSIS
     Dosage: 6-8 MG, UNK
  2. COUMADIN [Suspect]
     Indication: DRUG USE FOR UNKNOWN INDICATION
     Dosage: UNK

REACTIONS (1)
  - ABDOMINAL WALL HAEMATOMA [None]
